FAERS Safety Report 7094641-3 (Version None)
Quarter: 2010Q4

REPORT INFORMATION
  Report Type: 
  Country: None (occurrence: None)
  Receive Date: 20101110
  Receipt Date: 20101104
  Transmission Date: 20110411
  Serious: Yes (Congenital Anomaly, Other)
  Sender: FDA-Public Use
  Company Number: US-PFIZER INC-2008082789

PATIENT
  Sex: Female
  Weight: 2.63 kg

DRUGS (1)
  1. ZOLOFT [Suspect]

REACTIONS (8)
  - BRONCHOMALACIA [None]
  - CONGENITAL CARDIOVASCULAR ANOMALY [None]
  - DIAPHRAGMATIC HERNIA [None]
  - DRUG EXPOSURE DURING PREGNANCY [None]
  - ECTOPIA CORDIS [None]
  - EXOMPHALOS [None]
  - RETINOPATHY OF PREMATURITY [None]
  - TRACHEOMALACIA [None]
